FAERS Safety Report 22215552 (Version 1)
Quarter: 2023Q2

REPORT INFORMATION
  Report Type: Spontaneous
  Country: US (occurrence: US)
  Receive Date: 20230416
  Receipt Date: 20230416
  Transmission Date: 20230721
  Serious: Yes (Other)
  Sender: FDA-Public Use
  Company Number: US-JNJFOC-20200304672

PATIENT
  Sex: Female
  Weight: 69.916 kg

DRUGS (1)
  1. IMODIUM [Suspect]
     Active Substance: LOPERAMIDE HYDROCHLORIDE
     Indication: Diarrhoea
     Dosage: 3 TABLET PER DAY 4 TIMES A WEEK
     Route: 048
     Dates: end: 20200302

REACTIONS (1)
  - Drug abuse [Unknown]
